FAERS Safety Report 4407500-9 (Version None)
Quarter: 2004Q3

REPORT INFORMATION
  Report Type: 
  Country: None (occurrence: None)
  Receive Date: 20040726
  Receipt Date: 20040714
  Transmission Date: 20050211
  Serious: Yes (Hospitalization, Other)
  Sender: FDA-Public Use
  Company Number: US-AMGEN-US083410

PATIENT
  Age: 23 Year
  Sex: Female

DRUGS (19)
  1. SENSIPAR [Suspect]
     Indication: HYPERPARATHYROIDISM SECONDARY
     Route: 048
     Dates: start: 20040525, end: 20040708
  2. DILANTIN [Concomitant]
  3. INSULIN [Concomitant]
  4. LANTUS [Concomitant]
  5. AVANDIA [Concomitant]
     Route: 048
  6. AMARYL [Concomitant]
     Route: 048
  7. COZAAR [Concomitant]
     Route: 048
  8. LABETALOL HCL [Concomitant]
     Route: 048
  9. HYDRALAZINE HCL [Concomitant]
     Route: 048
  10. CATAPRES-TTS-1 [Concomitant]
     Route: 062
  11. LEVOXYL [Concomitant]
     Route: 048
  12. PROTONIX [Concomitant]
     Route: 048
  13. LIPRAM [Concomitant]
     Route: 048
  14. RENAGEL [Concomitant]
     Route: 048
  15. CALCIUM [Concomitant]
     Route: 048
  16. NEPHRO-VITE [Concomitant]
     Route: 048
  17. NEURONTIN [Concomitant]
     Route: 048
  18. XANAX [Concomitant]
  19. EPOGEN [Concomitant]

REACTIONS (10)
  - ARTHRALGIA [None]
  - BLOOD PRESSURE INCREASED [None]
  - COMPLEX PARTIAL SEIZURES [None]
  - HERPES SIMPLEX [None]
  - HYPERPHOSPHATAEMIA [None]
  - HYPOCALCAEMIA [None]
  - MUSCLE SPASMS [None]
  - NAUSEA [None]
  - PNEUMONIA [None]
  - VOMITING [None]
